FAERS Safety Report 8738189 (Version 2)
Quarter: 2013Q4

REPORT INFORMATION
  Report Type: Spontaneous
  Country: US (occurrence: US)
  Receive Date: 20120823
  Receipt Date: 20131101
  Transmission Date: 20140711
  Serious: No
  Sender: FDA-Public Use
  Company Number: US-009507513-1207USA011509

PATIENT
  Age: 62 Year
  Sex: Male

DRUGS (1)
  1. VICTRELIS [Suspect]
     Dosage: 800 MG, TID
     Route: 048

REACTIONS (4)
  - Weight decreased [Unknown]
  - Dysgeusia [Unknown]
  - Fatigue [Unknown]
  - Decreased appetite [Unknown]
